FAERS Safety Report 25598836 (Version 2)
Quarter: 2025Q3

REPORT INFORMATION
  Report Type: Spontaneous
  Country: US (occurrence: US)
  Receive Date: 20250724
  Receipt Date: 20250808
  Transmission Date: 20251021
  Serious: Yes (Other)
  Sender: TEVA
  Company Number: US-TEVA-VS-3352294

PATIENT
  Age: 4 Year
  Sex: Male

DRUGS (11)
  1. CARBOPLATIN [Suspect]
     Active Substance: CARBOPLATIN
     Indication: Metastatic neoplasm
     Route: 042
  2. CARBOPLATIN [Suspect]
     Active Substance: CARBOPLATIN
     Indication: Metastatic neoplasm
     Route: 042
  3. CARBOPLATIN [Suspect]
     Active Substance: CARBOPLATIN
     Indication: Metastatic neoplasm
     Route: 042
  4. CARBOPLATIN [Suspect]
     Active Substance: CARBOPLATIN
     Indication: Metastatic neoplasm
     Route: 042
  5. CARBOPLATIN [Suspect]
     Active Substance: CARBOPLATIN
     Indication: Metastatic neoplasm
     Route: 042
  6. CETIRIZINE [Concomitant]
     Active Substance: CETIRIZINE HYDROCHLORIDE
     Indication: Premedication
     Route: 065
  7. CETIRIZINE [Concomitant]
     Active Substance: CETIRIZINE HYDROCHLORIDE
     Indication: Premedication
     Route: 065
  8. CETIRIZINE [Concomitant]
     Active Substance: CETIRIZINE HYDROCHLORIDE
     Indication: Premedication
     Route: 065
  9. MONTELUKAST [Concomitant]
     Active Substance: MONTELUKAST
     Indication: Premedication
     Route: 065
  10. MONTELUKAST [Concomitant]
     Active Substance: MONTELUKAST
     Indication: Premedication
     Route: 065
  11. DIPHENHYDRAMINE HYDROCHLORIDE [Concomitant]
     Active Substance: DIPHENHYDRAMINE HYDROCHLORIDE
     Indication: Premedication
     Route: 042

REACTIONS (7)
  - Anaphylactic reaction [Recovered/Resolved]
  - Urticaria [Recovered/Resolved]
  - Flushing [Recovered/Resolved]
  - Cough [Recovered/Resolved]
  - Bradypnoea [Recovered/Resolved]
  - Vomiting [Recovered/Resolved]
  - Tachycardia [Recovered/Resolved]
